FAERS Safety Report 7523917-8 (Version None)
Quarter: 2011Q2

REPORT INFORMATION
  Report Type: 
  Country: None (occurrence: None)
  Receive Date: 20110603
  Receipt Date: 20110524
  Transmission Date: 20111010
  Serious: Yes (Other)
  Sender: FDA-Public Use
  Company Number: US-RB-028021-11

PATIENT
  Sex: Female

DRUGS (7)
  1. ABILIFY [Concomitant]
     Indication: ANXIETY
     Dosage: DOSAGE INFORMATION UNKNOWN
     Route: 065
  2. WELLBUTRIN [Concomitant]
     Dosage: DOSAGE INFORMATION UNKNOWN
     Route: 065
  3. SUBOXONE [Suspect]
     Indication: DRUG DEPENDENCE
     Route: 060
     Dates: start: 20100301, end: 20100701
  4. SUBUTEX [Suspect]
     Indication: DRUG DEPENDENCE
     Route: 060
     Dates: start: 20100701
  5. TRAZODONE HCL [Concomitant]
     Indication: DEPRESSION
     Dosage: 50 MG IN AM, 50 MG IN PM, 100 MG AT BT
     Route: 065
  6. ABILIFY [Concomitant]
     Indication: DEPRESSION
     Dosage: DOSAGE INFORMATION UNKNOWN
     Route: 065
  7. WELLBUTRIN [Concomitant]
     Indication: ANXIETY
     Dosage: DOSAGE INFORMATION UNKNOWN
     Route: 065

REACTIONS (3)
  - PREMATURE DELIVERY [None]
  - DRUG EXPOSURE DURING PREGNANCY [None]
  - PREGNANCY [None]
